FAERS Safety Report 4492613-6 (Version None)
Quarter: 2004Q4

REPORT INFORMATION
  Report Type: 
  Country: None (occurrence: None)
  Receive Date: 20041103
  Receipt Date: 20041019
  Transmission Date: 20050328
  Serious: Yes (Death)
  Sender: FDA-Public Use
  Company Number: 2004S1002711

PATIENT
  Age: 49 Year
  Sex: Male

DRUGS (2)
  1. CLOZAPINE [Suspect]
     Dosage: 25MG, BID, ORAL
     Route: 048
     Dates: start: 20040319
  2. MORPHINE [Concomitant]

REACTIONS (1)
  - RENAL FAILURE CHRONIC [None]
